FAERS Safety Report 9283867 (Version 1)
Quarter: 2013Q2

REPORT INFORMATION
  Report Type: Spontaneous
  Country: CA (occurrence: CA)
  Receive Date: 20130510
  Receipt Date: 20130510
  Transmission Date: 20140414
  Serious: Yes (Death)
  Sender: FDA-Public Use
  Company Number: CA-AMGEN-CANSP2013032694

PATIENT
  Age: 89 Year
  Sex: Female

DRUGS (19)
  1. ARANESP [Suspect]
     Indication: PRODUCT USED FOR UNKNOWN INDICATION
  2. NOVOLIN GE [Concomitant]
  3. SENOKOT                            /00142201/ [Concomitant]
  4. ZOPICLONE [Concomitant]
  5. NITRO DUR [Concomitant]
  6. ACETAMINOPHEN [Concomitant]
  7. SALBUTAMOL                         /00139502/ [Concomitant]
  8. TERAZOSIN [Concomitant]
  9. AMLODIPINE [Concomitant]
  10. PLAVIX [Concomitant]
  11. ONE ALPHA [Concomitant]
  12. TOLOXIN                            /00017701/ [Concomitant]
  13. RANITIDINE [Concomitant]
  14. FLOVENT [Concomitant]
  15. ASA [Concomitant]
     Dosage: 81 MG, UNK
  16. LASIX                              /00032601/ [Concomitant]
  17. METOPROLOL [Concomitant]
  18. GRAVOL [Concomitant]
  19. ATIVAN [Concomitant]

REACTIONS (1)
  - Pneumonia [Fatal]
